FAERS Safety Report 8361697-7 (Version None)
Quarter: 2012Q2

REPORT INFORMATION
  Report Type: 
  Country: None (occurrence: None)
  Receive Date: 20120514
  Receipt Date: 20120427
  Transmission Date: 20120825
  Serious: Yes (Other)
  Sender: FDA-Public Use
  Company Number: 2012-001286

PATIENT
  Age: 45 Year
  Sex: Male

DRUGS (16)
  1. ACTONEL [Suspect]
     Indication: OSTEOPENIA
     Dosage: 150 MG ONCE MONTHLY, ORAL
     Route: 048
     Dates: start: 20090323, end: 20110711
  2. PROTONIX [Concomitant]
  3. MAXALT MLT (RIZATRIPTAN BENZOATE) [Concomitant]
  4. XYZAL [Concomitant]
  5. LASIX [Concomitant]
  6. MUCINEX [Concomitant]
  7. ALBUTEROL SULFATE [Concomitant]
  8. MULTIPLE VITAMINS (ASCORBIC ACID, ERGOCALCIFEROL, FOLIC ACID, RETINOL, [Concomitant]
  9. ZOLOFT [Concomitant]
  10. ANDROGEL [Concomitant]
  11. ACTONEL [Suspect]
     Indication: OSTEOPENIA
     Dosage: 35 MG ONCE WEEKLY, ORAL
     Route: 048
     Dates: start: 20090112, end: 20090323
  12. HYDROCORTONE [Concomitant]
  13. VITAMIN D (COLECALCIFEROL) [Concomitant]
  14. CALCIUM CARBONATE [Concomitant]
  15. SUDAFED 12 HOUR [Concomitant]
  16. VIAGRA [Concomitant]

REACTIONS (10)
  - ARTHRITIS INFECTIVE [None]
  - CROHN'S DISEASE [None]
  - MEDICAL DEVICE COMPLICATION [None]
  - IRRITABLE BOWEL SYNDROME [None]
  - ARTHROPATHY [None]
  - ABDOMINAL DISCOMFORT [None]
  - BONE LOSS [None]
  - SPINAL DISORDER [None]
  - INCORRECT DRUG ADMINISTRATION DURATION [None]
  - FIBROMYALGIA [None]
